FAERS Safety Report 9439601 (Version 2)
Quarter: 2014Q1

REPORT INFORMATION
  Report Type: Spontaneous
  Country: DK (occurrence: DK)
  Receive Date: 20130805
  Receipt Date: 20140228
  Transmission Date: 20141002
  Serious: Yes (Hospitalization, Other)
  Sender: FDA-Public Use
  Company Number: DK-AMGEN-DNKSP2013053900

PATIENT
  Age: 83 Year
  Sex: 0

DRUGS (1)
  1. XGEVA [Suspect]
     Indication: METASTASES TO BONE
     Dosage: 120 MG, QMO
     Route: 065
     Dates: start: 201212

REACTIONS (3)
  - Abscess jaw [Recovered/Resolved]
  - Sequestrectomy [Recovered/Resolved]
  - Osteonecrosis of jaw [Not Recovered/Not Resolved]
